FAERS Safety Report 7865054-9 (Version None)
Quarter: 2011Q4

REPORT INFORMATION
  Report Type: 
  Country: None (occurrence: None)
  Receive Date: 20111028
  Receipt Date: 20101006
  Transmission Date: 20120403
  Serious: No
  Sender: FDA-Public Use
  Company Number: US-GLAXOSMITHKLINE-A0885244A

PATIENT
  Age: 70 Year
  Sex: Male

DRUGS (8)
  1. ADVAIR DISKUS 100/50 [Suspect]
     Indication: CHRONIC OBSTRUCTIVE PULMONARY DISEASE
     Dosage: 1PUFF TWICE PER DAY
     Route: 055
     Dates: start: 20050901, end: 20100901
  2. CALCIUM CARBONATE [Concomitant]
  3. TEMAZEPAM [Concomitant]
  4. VITAMIN TAB [Concomitant]
  5. NORCO [Concomitant]
  6. SERTRALINE HYDROCHLORIDE [Concomitant]
  7. FISH OIL [Concomitant]
  8. FINASTERIDE [Concomitant]

REACTIONS (2)
  - DYSPHONIA [None]
  - DRUG INEFFECTIVE [None]
